FAERS Safety Report 6075551-7 (Version None)
Quarter: 2009Q1

REPORT INFORMATION
  Report Type: 
  Country: None (occurrence: None)
  Receive Date: 20090212
  Receipt Date: 20090205
  Transmission Date: 20090719
  Serious: Yes (Hospitalization)
  Sender: FDA-Public Use
  Company Number: US-GENENTECH-238674

PATIENT
  Sex: Female
  Weight: 63.492 kg

DRUGS (7)
  1. OMALIZUMAB [Suspect]
     Indication: ASTHMA
     Dosage: 150 MG, Q4W
     Route: 058
     Dates: start: 20031029, end: 20061228
  2. ZOLOFT [Concomitant]
     Indication: DEPRESSION
  3. VITAMIN AND MINERAL PRENATAL SUPPLEMENT W/ FOLIC ACID CAP [Concomitant]
     Indication: PREGNANCY
  4. VITAMIN B6 [Concomitant]
     Indication: DRUG USE FOR UNKNOWN INDICATION
  5. METFORMIN HCL [Concomitant]
     Indication: POLYCYSTIC OVARIES
  6. AMOXICILLIN [Concomitant]
     Indication: STREPTOCOCCAL INFECTION
  7. IRON [Concomitant]
     Indication: ANAEMIA
     Dosage: UNK, QD
     Route: 048
     Dates: start: 20070627

REACTIONS (2)
  - DRUG EXPOSURE DURING PREGNANCY [None]
  - UTERINE SPASM [None]
